FAERS Safety Report 17129393 (Version 6)
Quarter: 2025Q2

REPORT INFORMATION
  Report Type: Spontaneous
  Country: US (occurrence: US)
  Receive Date: 20191209
  Receipt Date: 20250401
  Transmission Date: 20250717
  Serious: Yes (Hospitalization, Other)
  Sender: PFIZER
  Company Number: US-PFIZER INC-2019528178

PATIENT
  Age: 70 Year
  Sex: Female

DRUGS (2)
  1. XELJANZ XR [Suspect]
     Active Substance: TOFACITINIB CITRATE
     Dosage: 11 MG, 1X/DAY
     Route: 048
  2. NICODERM CQ [Concomitant]
     Active Substance: NICOTINE
     Indication: Smoking cessation therapy

REACTIONS (5)
  - Pneumonia [Unknown]
  - Swelling [Unknown]
  - COVID-19 [Unknown]
  - Allergy to animal [Unknown]
  - Anxiety [Unknown]
